FAERS Safety Report 19683872 (Version 2)
Quarter: 2021Q4

REPORT INFORMATION
  Report Type: Report from Study
  Country: DE (occurrence: DE)
  Receive Date: 20210811
  Receipt Date: 20211025
  Transmission Date: 20220303
  Serious: Yes (Other)
  Sender: FDA-Public Use
  Company Number: DE-ZENTIVA-2021-ZT-009357

PATIENT
  Age: 55 Year
  Sex: Female

DRUGS (10)
  1. ETORICOXIB [Suspect]
     Active Substance: ETORICOXIB
     Indication: Hodgkin^s disease
     Dosage: UNK
     Route: 048
  2. ETORICOXIB [Suspect]
     Active Substance: ETORICOXIB
     Indication: Off label use
  3. EVEROLIMUS [Suspect]
     Active Substance: EVEROLIMUS
     Indication: Off label use
     Dosage: UNK
     Route: 048
  4. EVEROLIMUS [Suspect]
     Active Substance: EVEROLIMUS
     Indication: Hodgkin^s disease
  5. PIOGLITAZONE [Suspect]
     Active Substance: PIOGLITAZONE
     Indication: Hodgkin^s disease
     Dosage: UNK
     Route: 048
  6. PIOGLITAZONE [Suspect]
     Active Substance: PIOGLITAZONE
     Indication: Off label use
  7. DEXAMETHASONE [Suspect]
     Active Substance: DEXAMETHASONE
     Indication: Off label use
     Dosage: UNK
     Route: 048
  8. DEXAMETHASONE [Suspect]
     Active Substance: DEXAMETHASONE
     Indication: Hodgkin^s disease
  9. TREOSULFAN [Suspect]
     Active Substance: TREOSULFAN
     Indication: Hodgkin^s disease
     Dosage: UNK
     Route: 048
  10. TREOSULFAN [Suspect]
     Active Substance: TREOSULFAN
     Indication: Off label use

REACTIONS (2)
  - Haematotoxicity [Unknown]
  - Off label use [Unknown]
